FAERS Safety Report 6963945-4 (Version None)
Quarter: 2010Q3

REPORT INFORMATION
  Report Type: 
  Country: None (occurrence: None)
  Receive Date: 20100902
  Receipt Date: 20100825
  Transmission Date: 20110219
  Serious: Yes (Death, Life-Threatening, Hospitalization)
  Sender: FDA-Public Use
  Company Number: US-AMGEN-KDC429333

PATIENT
  Age: 68 Year
  Sex: Male

DRUGS (1)
  1. ENBREL [Suspect]
     Indication: GRAFT VERSUS HOST DISEASE
     Dates: start: 20100521, end: 20100720

REACTIONS (2)
  - ACUTE GRAFT VERSUS HOST DISEASE [None]
  - FUNGAL SEPSIS [None]
